FAERS Safety Report 9303588 (Version 1)
Quarter: 2013Q2

REPORT INFORMATION
  Report Type: Report from Study
  Country: AU (occurrence: AU)
  Receive Date: 20130522
  Receipt Date: 20130522
  Transmission Date: 20140414
  Serious: Yes (Life-Threatening, Other)
  Sender: FDA-Public Use
  Company Number: PHHY2013AU051097

PATIENT
  Sex: Female

DRUGS (3)
  1. ACLASTA [Suspect]
     Dosage: 5 MG, UNK
     Route: 042
     Dates: start: 20101027
  2. ACLASTA [Suspect]
     Dosage: 5 MG, UNK
     Route: 042
     Dates: start: 20120517
  3. ACLASTA [Suspect]
     Dosage: 5 MG, UNK
     Route: 042

REACTIONS (6)
  - Feeling abnormal [Unknown]
  - Neurogenic bowel [Unknown]
  - Renal impairment [Unknown]
  - Malaise [Unknown]
  - Weight decreased [Unknown]
  - Aphagia [Unknown]
